FAERS Safety Report 22135490 (Version 1)
Quarter: 2023Q1

REPORT INFORMATION
  Report Type: Spontaneous
  Country: US (occurrence: US)
  Receive Date: 20230324
  Receipt Date: 20230324
  Transmission Date: 20230417
  Serious: No
  Sender: FDA-Public Use
  Company Number: US-AYTU-2022-AYT-00448

PATIENT

DRUGS (5)
  1. ADZENYS XR-ODT [Suspect]
     Active Substance: AMPHETAMINE
     Indication: Attention deficit hyperactivity disorder
     Dosage: UNK
     Route: 048
     Dates: start: 2022
  2. ADZENYS XR-ODT [Suspect]
     Active Substance: AMPHETAMINE
     Dosage: UNK
     Route: 048
     Dates: start: 20220729
  3. Alprazolam XR 1mg [Concomitant]
     Indication: Product used for unknown indication
  4. Vitamin D 5000 IU [Concomitant]
     Indication: Product used for unknown indication
  5. Methylfolate 5000mcg [Concomitant]
     Indication: Product used for unknown indication

REACTIONS (6)
  - Myalgia [None]
  - Arthralgia [None]
  - Pain in extremity [None]
  - Influenza like illness [None]
  - Hypokinesia [None]
  - Asthenia [None]

NARRATIVE: CASE EVENT DATE: 20220101
